FAERS Safety Report 8584647-7 (Version None)
Quarter: 2012Q3

REPORT INFORMATION
  Report Type: 
  Country: None (occurrence: None)
  Receive Date: 20120802
  Receipt Date: 20120802
  Transmission Date: 20120928
  Serious: Yes (Hospitalization)
  Sender: FDA-Public Use
  Company Number: None

PATIENT
  Age: 66 Year
  Sex: Male
  Weight: 62.9 kg

DRUGS (2)
  1. DIVALPROEX SODIUM [Suspect]
     Indication: BIPOLAR I DISORDER
     Dosage: 500 MG BID PO
     Route: 048
     Dates: start: 20120606, end: 20120628
  2. HYDROCHLOROTHIAZIDE [Suspect]
     Indication: HYPERTENSION
     Dosage: 12.5 MG EVERY DAY PO
     Route: 048
     Dates: start: 20110404, end: 20120628

REACTIONS (8)
  - AGITATION [None]
  - DELIRIUM [None]
  - HYPONATRAEMIA [None]
  - CONFUSIONAL STATE [None]
  - SEDATION [None]
  - SOMNOLENCE [None]
  - MANIA [None]
  - ABNORMAL BEHAVIOUR [None]
